FAERS Safety Report 16292740 (Version 2)
Quarter: 2019Q2

REPORT INFORMATION
  Report Type: Report from Study
  Country: US (occurrence: US)
  Receive Date: 20190509
  Receipt Date: 20190612
  Transmission Date: 20190711
  Serious: Yes (Hospitalization, Other)
  Sender: FDA-Public Use
  Company Number: US-ACTELION-A-US2019-190175

PATIENT
  Sex: Male

DRUGS (1)
  1. TRACLEER [Suspect]
     Active Substance: BOSENTAN
     Indication: PULMONARY ARTERIAL HYPERTENSION
     Dosage: 125 MG, BID
     Route: 048
     Dates: start: 20190130, end: 20190324

REACTIONS (7)
  - Heart valve replacement [Recovered/Resolved]
  - Pulmonary arterial pressure increased [Recovered/Resolved]
  - Sepsis [Recovered/Resolved]
  - Cardiopulmonary bypass [Recovered/Resolved]
  - Liver function test increased [Recovered/Resolved]
  - Post procedural complication [Unknown]
  - Parainfluenzae virus infection [Recovered/Resolved]
